FAERS Safety Report 14195056 (Version 1)
Quarter: 2017Q4

REPORT INFORMATION
  Report Type: Report from Study
  Country: AR (occurrence: AR)
  Receive Date: 20171116
  Receipt Date: 20171116
  Transmission Date: 20180321
  Serious: Yes (Hospitalization, Other)
  Sender: FDA-Public Use
  Company Number: AR-ACTELION-A-CH2017-162338

PATIENT
  Age: 45 Year
  Sex: Male

DRUGS (1)
  1. ZAVESCA [Suspect]
     Active Substance: MIGLUSTAT
     Indication: NIEMANN-PICK DISEASE
     Dosage: UNK
     Route: 048
     Dates: start: 201606, end: 201711

REACTIONS (3)
  - Tracheostomy [Unknown]
  - Pleural operation [Unknown]
  - Pyrexia [Unknown]

NARRATIVE: CASE EVENT DATE: 20171105
